FAERS Safety Report 11532265 (Version 1)
Quarter: 2015Q3

REPORT INFORMATION
  Report Type: Spontaneous
  Country: US (occurrence: US)
  Receive Date: 20150903
  Receipt Date: 20150903
  Transmission Date: 20151125
  Serious: No
  Sender: FDA-Public Use
  Company Number: US-ELI_LILLY_AND_COMPANY-US201201000255

PATIENT
  Sex: Female

DRUGS (4)
  1. HUMALOG [Suspect]
     Active Substance: INSULIN LISPRO
     Dosage: UNK, EACH EVENING
  2. ORAL ANTIDIABETICS [Concomitant]
     Active Substance: UNSPECIFIED INGREDIENT
  3. HUMALOG [Suspect]
     Active Substance: INSULIN LISPRO
     Indication: DIABETES MELLITUS
     Dosage: UNK, EACH EVENING
  4. LANTUS [Concomitant]
     Active Substance: INSULIN GLARGINE
     Dosage: 10 U, UNK

REACTIONS (3)
  - Blood glucose increased [Unknown]
  - Injection site pain [Unknown]
  - Cough [Unknown]

NARRATIVE: CASE EVENT DATE: 20111228
